FAERS Safety Report 13874801 (Version 1)
Quarter: 2017Q3

REPORT INFORMATION
  Report Type: Spontaneous
  Country: US (occurrence: US)
  Receive Date: 20170816
  Receipt Date: 20170816
  Transmission Date: 20171127
  Serious: No
  Sender: FDA-Public Use
  Company Number: US-ROCHE-1292176

PATIENT
  Sex: Female

DRUGS (1)
  1. LUCENTIS [Suspect]
     Active Substance: RANIBIZUMAB
     Indication: VITREOUS HAEMORRHAGE
     Dosage: LUCENTIS INJECTION ON MY LEFT EYE LAST OCTOBER 4
     Route: 065

REACTIONS (1)
  - Abdominal discomfort [Unknown]
